FAERS Safety Report 19007357 (Version 1)
Quarter: 2021Q1

REPORT INFORMATION
  Report Type: Spontaneous
  Country: US (occurrence: US)
  Receive Date: 20210310
  Receipt Date: 20210310
  Transmission Date: 20210420
  Serious: Yes (Hospitalization, Disabling)
  Sender: FDA-Public Use
  Company Number: None

PATIENT
  Age: 40 Year
  Sex: Female

DRUGS (2)
  1. COSMETICS [Suspect]
     Active Substance: COSMETICS
  2. PLATELET RICH PLASMA. [Suspect]
     Active Substance: PLATELET RICH PLASMA

REACTIONS (5)
  - Swelling [None]
  - Vomiting [None]
  - Head discomfort [None]
  - Retinal vascular thrombosis [None]
  - Coma [None]

NARRATIVE: CASE EVENT DATE: 20210227
